FAERS Safety Report 9215214 (Version 2)
Quarter: 2013Q2

REPORT INFORMATION
  Report Type: Spontaneous
  Country: US (occurrence: US)
  Receive Date: 20130405
  Receipt Date: 20130411
  Transmission Date: 20140414
  Serious: Yes (Other)
  Sender: FDA-Public Use
  Company Number: CHPA2011US12923

PATIENT
  Age: 80 Year
  Sex: Female

DRUGS (5)
  1. EXCEDRIN EXTRA STRENGTH [Suspect]
     Indication: HEADACHE
     Dosage: 1 DF, PRN
     Route: 048
     Dates: start: 1960
  2. EXCEDRIN EXTRA STRENGTH [Suspect]
     Indication: ARTHRALGIA
  3. EXCEDRIN EXTRA STRENGTH [Suspect]
     Indication: HEADACHE
     Dosage: 1 DF, PRN
     Route: 048
     Dates: start: 1960
  4. EXCEDRIN EXTRA STRENGTH [Suspect]
     Indication: PAIN
  5. EXCEDRIN MIGRAINE [Suspect]
     Indication: HEADACHE
     Dosage: 1 DF, PRN
     Route: 048

REACTIONS (3)
  - Hypertension [Not Recovered/Not Resolved]
  - Wrong technique in drug usage process [Unknown]
  - Underdose [Unknown]
